FAERS Safety Report 13737206 (Version 1)
Quarter: 2017Q3

REPORT INFORMATION
  Report Type: Spontaneous
  Country: None (occurrence: US)
  Receive Date: 20170710
  Receipt Date: 20170710
  Transmission Date: 20171127
  Serious: Yes (Other)
  Sender: FDA-Public Use
  Company Number: US-SAOL THERAPEUTICS-2016SAO00134

PATIENT
  Age: 42 Year
  Sex: Female

DRUGS (6)
  1. LIORESAL [Suspect]
     Active Substance: BACLOFEN
     Indication: MULTIPLE SCLEROSIS
     Dosage: 124 ?G, \DAY
     Dates: start: 20150319
  2. BACLOFEN (ORAL) [Concomitant]
     Active Substance: BACLOFEN
     Route: 048
  3. LIORESAL [Suspect]
     Active Substance: BACLOFEN
     Dosage: 59.92 ?G, \DAY
     Dates: start: 20160706
  4. VALIUM [Concomitant]
     Active Substance: DIAZEPAM
     Dosage: UNKNOWN
  5. LIORESAL [Suspect]
     Active Substance: BACLOFEN
     Dosage: 49 ?G, \DAY
     Dates: end: 20160706
  6. LIORESAL [Suspect]
     Active Substance: BACLOFEN
     Dosage: 75.1 ?G, \DAY
     Dates: start: 20160713

REACTIONS (11)
  - Vomiting [Unknown]
  - Muscle spasms [Recovering/Resolving]
  - Therapy non-responder [Unknown]
  - Pain [Unknown]
  - Complication associated with device [Unknown]
  - Device kink [Recovered/Resolved]
  - Abdominal pain [None]
  - Urinary tract infection [Unknown]
  - Device dislocation [Recovered/Resolved]
  - Device failure [Recovered/Resolved]
  - Dyspnoea [None]

NARRATIVE: CASE EVENT DATE: 2016
